FAERS Safety Report 4723206-0 (Version None)
Quarter: 2005Q3

REPORT INFORMATION
  Report Type: 
  Country: None (occurrence: None)
  Receive Date: 20050720
  Receipt Date: 20050630
  Transmission Date: 20060218
  Serious: Yes (Hospitalization)
  Sender: FDA-Public Use
  Company Number: CHPA2005US01293

PATIENT
  Age: 63 Year
  Sex: Male
  Weight: 117.9 kg

DRUGS (1)
  1. CONTROL STEP 1 21MG (NCH)(NICOTINE) TRANS-THERAPEUTIC-SYSTEM [Suspect]
     Indication: SMOKING CESSATION THERAPY
     Dosage: 21 MG, QD, TRANSDERMAL
     Route: 062
     Dates: start: 20050423, end: 20050501

REACTIONS (4)
  - HYPOAESTHESIA [None]
  - MYOCARDIAL INFARCTION [None]
  - PARAESTHESIA [None]
  - TREATMENT NONCOMPLIANCE [None]
